FAERS Safety Report 15593660 (Version 5)
Quarter: 2019Q1

REPORT INFORMATION
  Report Type: Spontaneous
  Country: US (occurrence: US)
  Receive Date: 20181106
  Receipt Date: 20190117
  Transmission Date: 20190417
  Serious: Yes (Hospitalization)
  Sender: FDA-Public Use
  Company Number: US-ACTELION-A-NJ2018-180871

PATIENT
  Age: 38 Year
  Sex: Male
  Weight: 86.62 kg

DRUGS (7)
  1. VELETRI [Suspect]
     Active Substance: EPOPROSTENOL
     Dosage: 4 NG/KG, PER MIN
     Route: 042
  2. VELETRI [Suspect]
     Active Substance: EPOPROSTENOL
     Dosage: 18 NG/KG, PER MIN
     Route: 042
  3. DILTIAZEM. [Concomitant]
     Active Substance: DILTIAZEM
  4. LETAIRIS [Concomitant]
     Active Substance: AMBRISENTAN
  5. VELETRI [Suspect]
     Active Substance: EPOPROSTENOL
     Dosage: 24 NG/KG, PER MIN
     Route: 042
  6. VELETRI [Suspect]
     Active Substance: EPOPROSTENOL
     Indication: PULMONARY HYPERTENSION
     Dosage: 20.94 NG/KG, PER MIN
     Route: 042
  7. VELETRI [Suspect]
     Active Substance: EPOPROSTENOL
     Dosage: 31.6 NG/KG, PER MIN
     Route: 042

REACTIONS (14)
  - Pain [Unknown]
  - Catheter site infection [Unknown]
  - Sepsis [Unknown]
  - Product selection error [Unknown]
  - Device leakage [Unknown]
  - Device alarm issue [Unknown]
  - Sinus pain [Unknown]
  - Dermatitis contact [Unknown]
  - Feeling hot [Unknown]
  - Muscular weakness [Unknown]
  - Anxiety [Unknown]
  - Pain in extremity [Unknown]
  - Somnolence [Unknown]
  - Flank pain [Unknown]
